FAERS Safety Report 7551245-3 (Version None)
Quarter: 2011Q2

REPORT INFORMATION
  Report Type: 
  Country: None (occurrence: None)
  Receive Date: 20110616
  Receipt Date: 20110603
  Transmission Date: 20111010
  Serious: Yes (Hospitalization)
  Sender: FDA-Public Use
  Company Number: PHHY2011DE49640

PATIENT
  Age: 39 Year
  Sex: Female

DRUGS (4)
  1. MYCOPHENOLIC ACID [Suspect]
     Indication: RENAL TRANSPLANT
  2. PREDNISONE [Concomitant]
     Indication: IMMUNOSUPPRESSION
  3. SIROLIMUS [Concomitant]
  4. TACROLIMUS [Concomitant]
     Indication: IMMUNOSUPPRESSION

REACTIONS (12)
  - HEPATIC CYST [None]
  - ALANINE AMINOTRANSFERASE INCREASED [None]
  - BRONCHOPNEUMONIA [None]
  - ASPARTATE AMINOTRANSFERASE INCREASED [None]
  - TRANSPLANT REJECTION [None]
  - PROTEINURIA [None]
  - URINARY TRACT INFECTION [None]
  - GLOMERULAR FILTRATION RATE DECREASED [None]
  - HEPATIC ECHINOCOCCIASIS [None]
  - ABDOMINAL PAIN UPPER [None]
  - CHRONIC ALLOGRAFT NEPHROPATHY [None]
  - POST PROCEDURAL HAEMORRHAGE [None]
